FAERS Safety Report 13905779 (Version 1)
Quarter: 2017Q3

REPORT INFORMATION
  Report Type: Spontaneous
  Country: US (occurrence: US)
  Receive Date: 20170825
  Receipt Date: 20170825
  Transmission Date: 20171127
  Serious: No
  Sender: FDA-Public Use
  Company Number: US-GLAXOSMITHKLINE-US2017GSK130864

PATIENT
  Sex: Female
  Weight: 108.84 kg

DRUGS (8)
  1. LAMICTAL [Suspect]
     Active Substance: LAMOTRIGINE
     Indication: AFFECTIVE DISORDER
     Dosage: 150 MG AT BEDTIME
     Route: 048
  2. LYRICA [Concomitant]
     Active Substance: PREGABALIN
  3. KLONOPIN [Concomitant]
     Active Substance: CLONAZEPAM
  4. TRAZODONE [Concomitant]
     Active Substance: TRAZODONE HYDROCHLORIDE
  5. IBUPROFEN. [Concomitant]
     Active Substance: IBUPROFEN
  6. TYLENOL [Concomitant]
     Active Substance: ACETAMINOPHEN
  7. LOSARTAN POTASSIUM TABLET [Concomitant]
     Active Substance: LOSARTAN POTASSIUM
  8. EFFEXOR CAPSULE [Concomitant]

REACTIONS (2)
  - Therapeutic response unexpected [Not Recovered/Not Resolved]
  - Pre-existing condition improved [Not Recovered/Not Resolved]
